FAERS Safety Report 11458712 (Version 1)
Quarter: 2015Q3

REPORT INFORMATION
  Report Type: Spontaneous
  Country: US (occurrence: None)
  Receive Date: 20150903
  Receipt Date: 20150903
  Transmission Date: 20151125
  Serious: Yes (Other)
  Sender: FDA-Public Use
  Company Number: None

PATIENT
  Age: 53 Year
  Sex: Female
  Weight: 99.79 kg

DRUGS (7)
  1. COPAXONE [Suspect]
     Active Substance: GLATIRAMER ACETATE
     Indication: OPTIC NEURITIS
     Dosage: INJECTION VIA AUTOJECT 3X PER WEEK GIVEN INTO/UNDER THE SKIN
     Route: 058
     Dates: start: 20150608, end: 20150902
  2. COPAXONE [Suspect]
     Active Substance: GLATIRAMER ACETATE
     Indication: MULTIPLE SCLEROSIS
     Dosage: INJECTION VIA AUTOJECT 3X PER WEEK GIVEN INTO/UNDER THE SKIN
     Route: 058
     Dates: start: 20150608, end: 20150902
  3. OMEGA 3 FISH OIL [Concomitant]
     Active Substance: FISH OIL\OMEGA-3 FATTY ACIDS
  4. SINGULAIR [Concomitant]
     Active Substance: MONTELUKAST SODIUM
  5. VITAMIN D [Concomitant]
     Active Substance: CHOLECALCIFEROL
  6. EFFEXOR XR [Concomitant]
     Active Substance: VENLAFAXINE HYDROCHLORIDE
  7. GABAPENTIN. [Concomitant]
     Active Substance: GABAPENTIN

REACTIONS (12)
  - Arthralgia [None]
  - Injection site pain [None]
  - Condition aggravated [None]
  - Chills [None]
  - Pyrexia [None]
  - Injection site pruritus [None]
  - Paraesthesia [None]
  - Drug ineffective [None]
  - Injection site swelling [None]
  - Central nervous system lesion [None]
  - Fatigue [None]
  - Vision blurred [None]

NARRATIVE: CASE EVENT DATE: 20150803
